FAERS Safety Report 13961375 (Version 4)
Quarter: 2018Q1

REPORT INFORMATION
  Report Type: Report from Study
  Country: US (occurrence: US)
  Receive Date: 20170912
  Receipt Date: 20180301
  Transmission Date: 20180508
  Serious: Yes (Hospitalization, Other)
  Sender: FDA-Public Use
  Company Number: US-JNJFOC-20170818825

PATIENT
  Age: 80 Year
  Sex: Male
  Weight: 109.2 kg

DRUGS (9)
  1. LENALIDOMIDE [Suspect]
     Active Substance: LENALIDOMIDE
     Indication: NODAL MARGINAL ZONE B-CELL LYMPHOMA
     Dosage: 5 MG, UNK
     Route: 048
     Dates: start: 20170612, end: 20170630
  2. IBRUTINIB [Suspect]
     Active Substance: IBRUTINIB
     Indication: NODAL MARGINAL ZONE B-CELL LYMPHOMA
     Route: 048
     Dates: start: 20170508, end: 20170630
  3. IBRUTINIB [Suspect]
     Active Substance: IBRUTINIB
     Indication: NODAL MARGINAL ZONE B-CELL LYMPHOMA
     Route: 048
     Dates: start: 20170724
  4. LENALIDOMIDE [Suspect]
     Active Substance: LENALIDOMIDE
     Indication: NODAL MARGINAL ZONE B-CELL LYMPHOMA
     Route: 048
     Dates: start: 20170724, end: 20170801
  5. LENALIDOMIDE [Suspect]
     Active Substance: LENALIDOMIDE
     Indication: NODAL MARGINAL ZONE B-CELL LYMPHOMA
     Dosage: 2.5 MG, QD
     Route: 048
     Dates: start: 20170605
  6. LENALIDOMIDE [Suspect]
     Active Substance: LENALIDOMIDE
     Indication: NODAL MARGINAL ZONE B-CELL LYMPHOMA
     Dosage: 2.5 MG, QD
     Route: 048
     Dates: start: 20170705, end: 20170714
  7. IBRUTINIB [Suspect]
     Active Substance: IBRUTINIB
     Indication: NODAL MARGINAL ZONE B-CELL LYMPHOMA
     Route: 048
     Dates: start: 20170705, end: 20170715
  8. LENALIDOMIDE [Suspect]
     Active Substance: LENALIDOMIDE
     Indication: NODAL MARGINAL ZONE B-CELL LYMPHOMA
     Dosage: 5 MG, QD CYCLE 2 PLUS
     Route: 048
     Dates: end: 20170811
  9. IBRUTINIB [Suspect]
     Active Substance: IBRUTINIB
     Indication: NODAL MARGINAL ZONE B-CELL LYMPHOMA
     Route: 048
     Dates: start: 20170811

REACTIONS (10)
  - Lymphocyte count decreased [Recovered/Resolved]
  - Atrial fibrillation [Recovered/Resolved]
  - Pneumonia [Recovered/Resolved]
  - Anaemia [Recovered/Resolved]
  - Vomiting [Recovered/Resolved]
  - Dehydration [Recovered/Resolved]
  - Syncope [Recovered/Resolved]
  - Diarrhoea [Recovered/Resolved]
  - Vomiting [Recovered/Resolved]
  - Diarrhoea [Recovered/Resolved]

NARRATIVE: CASE EVENT DATE: 20170730
